FAERS Safety Report 17064814 (Version 2)
Quarter: 2021Q2

REPORT INFORMATION
  Report Type: Spontaneous
  Country: US (occurrence: US)
  Receive Date: 20191122
  Receipt Date: 20210421
  Transmission Date: 20210716
  Serious: Yes (Disabling)
  Sender: FDA-Public Use
  Company Number: US-TEVA-2019-US-1140030

PATIENT
  Sex: Female

DRUGS (2)
  1. DOCETAXEL HOSPIRA [Suspect]
     Active Substance: DOCETAXEL
     Dates: start: 20160111, end: 20160314
  2. DOCETAXEL SANDOZ [Suspect]
     Active Substance: DOCETAXEL
     Dates: start: 20160111, end: 20160314

REACTIONS (1)
  - Alopecia [Not Recovered/Not Resolved]
